FAERS Safety Report 5089299-9 (Version None)
Quarter: 2006Q3

REPORT INFORMATION
  Report Type: 
  Country: None (occurrence: None)
  Receive Date: 20060822
  Receipt Date: 20060803
  Transmission Date: 20061208
  Serious: Yes (Hospitalization)
  Sender: FDA-Public Use
  Company Number: NL200604001122

PATIENT
  Age: 21 Year
  Sex: Male
  Weight: 86 kg

DRUGS (2)
  1. ATOMOXETINE HYDROCHLORIDE (ATOMOXETINE HYDROCHLORIDE) CAPSULE [Suspect]
     Indication: ATTENTION DEFICIT/HYPERACTIVITY DISORDER
     Dosage: 60 MG, DAILY (1/D), ORAL
     Route: 048
     Dates: start: 20060109, end: 20060127
  2. LORMETAZEPAM (LORMETAZEPAM) [Concomitant]

REACTIONS (2)
  - IMPULSIVE BEHAVIOUR [None]
  - SUICIDAL IDEATION [None]
